FAERS Safety Report 4448837-7 (Version None)
Quarter: 2004Q3

REPORT INFORMATION
  Report Type: 
  Country: None (occurrence: None)
  Receive Date: 20040909
  Receipt Date: 20040826
  Transmission Date: 20050211
  Serious: Yes (Death)
  Sender: FDA-Public Use
  Company Number: 2004-119878-NL

PATIENT
  Sex: 0

DRUGS (2)
  1. MENOTROPINS [Suspect]
  2. HCG [Suspect]

REACTIONS (7)
  - ABORTION THREATENED [None]
  - CAESAREAN SECTION [None]
  - MATERNAL CONDITION AFFECTING FOETUS [None]
  - MULTIPLE PREGNANCY [None]
  - NEONATAL RESPIRATORY FAILURE [None]
  - PREMATURE RUPTURE OF MEMBRANES [None]
  - STILLBIRTH [None]
